FAERS Safety Report 18334243 (Version 2)
Quarter: 2021Q1

REPORT INFORMATION
  Report Type: Report from Study
  Country: DE (occurrence: DE)
  Receive Date: 20201001
  Receipt Date: 20210318
  Transmission Date: 20210419
  Serious: Yes (Death, Other)
  Sender: FDA-Public Use
  Company Number: DE-BRISTOL-MYERS SQUIBB COMPANY-BMS-2020-080569

PATIENT
  Age: 77 Year
  Sex: Male

DRUGS (14)
  1. TORASEMID [Concomitant]
     Active Substance: TORSEMIDE
     Indication: DIURETIC THERAPY
     Dosage: 10 MILLIGRAM
     Route: 048
  2. GEMCITABINE HYDROCHLORIDE. [Suspect]
     Active Substance: GEMCITABINE HYDROCHLORIDE
     Indication: NON-HODGKIN^S LYMPHOMA
     Dosage: 1900 MILLIGRAM, QCYCLE
     Route: 042
     Dates: start: 20200828, end: 20200921
  3. PEGFILGRASTIM [Suspect]
     Active Substance: PEGFILGRASTIM
     Indication: NON-HODGKIN^S LYMPHOMA
     Dosage: 6 MILLIGRAM, QCYCLE
     Route: 058
     Dates: start: 20200830, end: 20200924
  4. CIPROFLOXACIN. [Concomitant]
     Active Substance: CIPROFLOXACIN
     Indication: PROPHYLAXIS
     Dosage: 500 MILLIGRAM, BID
     Route: 048
  5. ACICLOVIR [Concomitant]
     Active Substance: ACYCLOVIR
     Indication: PROPHYLAXIS
     Dosage: 400 MILLIGRAM, BID
     Route: 048
  6. AMPHOTERICIN B. [Concomitant]
     Active Substance: AMPHOTERICIN B
     Indication: PROPHYLAXIS
     Dosage: 10 MILLIGRAM, QID
     Route: 048
  7. BISOPROLOL [Concomitant]
     Active Substance: BISOPROLOL
     Indication: HYPERTENSION
     Dosage: 1.25 MILLIGRAM, QD
     Route: 048
  8. BETAMETHASON [BETAMETHASONE] [Concomitant]
     Active Substance: BETAMETHASONE
     Indication: VASCULITIS
     Dosage: UNK, QD
     Route: 003
  9. CANDESARTAN. [Concomitant]
     Active Substance: CANDESARTAN
     Indication: HYPERTENSION
     Dosage: 16 MILLIGRAM, QD
     Route: 048
  10. NIVOLUMAB [Suspect]
     Active Substance: NIVOLUMAB
     Indication: NON-HODGKIN^S LYMPHOMA
     Dosage: 217.5 MILLIGRAM, QCYCLE
     Route: 042
     Dates: start: 20200827, end: 20200921
  11. ATORVASTATIN [Concomitant]
     Active Substance: ATORVASTATIN
     Indication: HYPERCHOLESTEROLAEMIA
     Dosage: 10 MILLIGRAM, QD
     Route: 048
  12. BISOPROLOL [Concomitant]
     Active Substance: BISOPROLOL
     Indication: TACHYCARDIA
  13. OXALIPLATIN. [Suspect]
     Active Substance: OXALIPLATIN
     Indication: NON-HODGKIN^S LYMPHOMA
     Dosage: 190 MILLIGRAM, QCYCLE
     Route: 042
     Dates: start: 20200828, end: 20200921
  14. INNOHEP [Concomitant]
     Active Substance: TINZAPARIN SODIUM
     Indication: ATRIAL FIBRILLATION
     Dosage: UNK
     Route: 058

REACTIONS (1)
  - Septic shock [Fatal]

NARRATIVE: CASE EVENT DATE: 20200922
